FAERS Safety Report 21265585 (Version 1)
Quarter: 2022Q3

REPORT INFORMATION
  Report Type: Spontaneous
  Country: US (occurrence: None)
  Receive Date: 20220826
  Receipt Date: 20220826
  Transmission Date: 20221027
  Serious: Yes (Hospitalization)
  Sender: FDA-Public Use
  Company Number: None

PATIENT
  Age: 76 Year
  Sex: Male

DRUGS (2)
  1. LISINOPRIL [Suspect]
     Active Substance: LISINOPRIL
     Indication: Hypertension
     Dosage: 40 MG EVERY DAY PO
     Route: 048
     Dates: start: 20171024, end: 20220630
  2. HYDROCHLOROTHIAZIDE [Suspect]
     Active Substance: HYDROCHLOROTHIAZIDE
     Indication: Hypertension
     Dosage: 25 MG EVERY DAY PO?
     Route: 048
     Dates: start: 20081129, end: 20220630

REACTIONS (8)
  - Hypotension [None]
  - Fall [None]
  - Dysuria [None]
  - Syncope [None]
  - Asthenia [None]
  - Fatigue [None]
  - Dizziness [None]
  - Acute kidney injury [None]

NARRATIVE: CASE EVENT DATE: 20220628
